FAERS Safety Report 4742142-7 (Version None)
Quarter: 2005Q3

REPORT INFORMATION
  Report Type: 
  Country: None (occurrence: None)
  Receive Date: 20050811
  Receipt Date: 20050801
  Transmission Date: 20060218
  Serious: Yes (Hospitalization)
  Sender: FDA-Public Use
  Company Number: 2005UW11353

PATIENT
  Age: 80 Year
  Sex: Female

DRUGS (6)
  1. ARIMIDEX [Suspect]
     Indication: BREAST CANCER
     Route: 048
     Dates: start: 20050601
  2. ALTACE [Concomitant]
  3. COREG [Concomitant]
  4. PROTONIX [Concomitant]
  5. SPIRONOLACTONE [Concomitant]
  6. NORVASC [Concomitant]

REACTIONS (8)
  - COUGH [None]
  - DIARRHOEA [None]
  - FATIGUE [None]
  - FEELING ABNORMAL [None]
  - GAIT DISTURBANCE [None]
  - NAUSEA [None]
  - PANCREATITIS [None]
  - THROAT IRRITATION [None]
